FAERS Safety Report 5069609-9 (Version None)
Quarter: 2006Q3

REPORT INFORMATION
  Report Type: 
  Country: None (occurrence: None)
  Receive Date: 20060803
  Receipt Date: 20060616
  Transmission Date: 20061208
  Serious: Yes (Hospitalization, Other)
  Sender: FDA-Public Use
  Company Number: FR-BRISTOL-MYERS SQUIBB COMPANY-13415054

PATIENT
  Age: 38 Year
  Sex: Male
  Weight: 70 kg

DRUGS (4)
  1. REYATAZ [Suspect]
     Indication: HIV INFECTION
     Route: 048
     Dates: start: 20040901, end: 20060627
  2. RITONAVIR [Concomitant]
     Dates: start: 20040901
  3. TENOFOVIR [Concomitant]
     Dates: start: 20030901
  4. EMTRICITABINE [Concomitant]
     Dates: start: 20040901

REACTIONS (2)
  - NEPHROLITHIASIS [None]
  - RENAL COLIC [None]
